FAERS Safety Report 5838788-5 (Version None)
Quarter: 2008Q3

REPORT INFORMATION
  Report Type: 
  Country: None (occurrence: None)
  Receive Date: 20080808
  Receipt Date: 20080728
  Transmission Date: 20090109
  Serious: Yes (Other)
  Sender: FDA-Public Use
  Company Number: CA-ELI_LILLY_AND_COMPANY-CA200808000777

PATIENT
  Sex: Male

DRUGS (2)
  1. STRATTERA [Interacting]
     Indication: ATTENTION DEFICIT/HYPERACTIVITY DISORDER
     Dosage: 100 MG, UNK
  2. CYMBALTA [Suspect]
     Indication: PAIN
     Dosage: 60 MG, UNK

REACTIONS (6)
  - ALANINE AMINOTRANSFERASE INCREASED [None]
  - ATTENTION DEFICIT/HYPERACTIVITY DISORDER [None]
  - DEPRESSED MOOD [None]
  - DRUG INTERACTION [None]
  - PAIN [None]
  - ROAD TRAFFIC ACCIDENT [None]
